FAERS Safety Report 13755414 (Version 2)
Quarter: 2017Q4

REPORT INFORMATION
  Report Type: Spontaneous
  Country: US (occurrence: US)
  Receive Date: 20170714
  Receipt Date: 20171018
  Transmission Date: 20180320
  Serious: No
  Sender: FDA-Public Use
  Company Number: US-PFIZER INC-2017305303

PATIENT
  Age: 81 Year
  Sex: Male
  Weight: 76.66 kg

DRUGS (1)
  1. INLYTA [Suspect]
     Active Substance: AXITINIB
     Indication: LUNG NEOPLASM MALIGNANT
     Dosage: 5 MG, 2X/DAY[ONCE IN THE MORNING AND ONCE IN THE EVENING]
     Dates: start: 2017

REACTIONS (2)
  - Renal disorder [Unknown]
  - Blood creatinine increased [Not Recovered/Not Resolved]

NARRATIVE: CASE EVENT DATE: 2017
